FAERS Safety Report 5494693-8 (Version None)
Quarter: 2007Q4

REPORT INFORMATION
  Report Type: 
  Country: None (occurrence: None)
  Receive Date: 20071024
  Receipt Date: 20071016
  Transmission Date: 20080405
  Serious: Yes (Other)
  Sender: FDA-Public Use
  Company Number: DE-GILEAD-2007-0013839

PATIENT
  Sex: Male

DRUGS (2)
  1. HEPSERA [Suspect]
     Dates: start: 20061001
  2. FENOFIBRATE [Concomitant]
     Indication: HYPERTRIGLYCERIDAEMIA

REACTIONS (1)
  - RHABDOMYOLYSIS [None]
